FAERS Safety Report 9363315 (Version 1)
Quarter: 2013Q2

REPORT INFORMATION
  Report Type: Spontaneous
  Country: US (occurrence: US)
  Receive Date: 20130624
  Receipt Date: 20130624
  Transmission Date: 20140414
  Serious: No
  Sender: FDA-Public Use
  Company Number: US-BAYER-2013-075080

PATIENT
  Age: 30 Year
  Sex: Female
  Weight: 75 kg

DRUGS (7)
  1. BETASERON [Suspect]
     Dosage: 0.3 MG, UNK
  2. CYMBALTA [Concomitant]
     Dosage: 30 MG, UNK
  3. TRILEPTAL [Concomitant]
     Dosage: 600 MG, UNK
  4. AMANTADINE [Concomitant]
     Dosage: 100 MG, UNK
  5. FOLIC ACID [Concomitant]
     Dosage: 800 ?G, UNK
  6. VITAMIN B COMPLEX [Concomitant]
  7. MULTIVITAMIN [Concomitant]

REACTIONS (1)
  - Drug ineffective [Unknown]
